FAERS Safety Report 8702885 (Version 4)
Quarter: 2012Q4

REPORT INFORMATION
  Report Type: 
  Country: US (occurrence: US)
  Receive Date: 20120803
  Receipt Date: 20120918
  Transmission Date: 20130627
  Serious: Yes (Other)
  Sender: FDA-Public Use
  Company Number: US-PFIZER INC-2012186063

PATIENT
  Age: 87 Year
  Sex: Male

DRUGS (11)
  1. LIPITOR [Suspect]
     Dosage: UNK
     Dates: start: 1997
  2. PLAVIX [Concomitant]
     Dosage: 75 mg, UNK
  3. SYNTHROID [Concomitant]
     Dosage: 100 ug, UNK
  4. BABY ASPIRIN [Concomitant]
     Dosage: 81 mg, UNK
  5. FUROSEMIDE [Concomitant]
     Dosage: 20 mg
  6. LOSARTAN [Concomitant]
     Dosage: 50 mg
  7. CARVEDILOL [Concomitant]
     Dosage: 6.25 mg, UNK
  8. MEXILETINE [Concomitant]
     Dosage: 150 mg, UNK
  9. SPIRONOLACTONE [Concomitant]
     Dosage: 25 mg, UNK
  10. MAG OX [Concomitant]
     Dosage: 400 mg, UNK
  11. POTASSIUM [Concomitant]
     Dosage: 10 mEq, UNK

REACTIONS (4)
  - Cerebrovascular accident [Recovered/Resolved with Sequelae]
  - Mobility decreased [Unknown]
  - Asthenia [Unknown]
  - Aphasia [Unknown]
